FAERS Safety Report 4674334-X (Version None)
Quarter: 2005Q2

REPORT INFORMATION
  Report Type: 
  Country: None (occurrence: None)
  Receive Date: 20050526
  Receipt Date: 20050323
  Transmission Date: 20051028
  Serious: Yes (Hospitalization)
  Sender: FDA-Public Use
  Company Number: US-BRISTOL-MYERS SQUIBB COMPANY-12913687

PATIENT
  Age: 68 Year
  Sex: Male

DRUGS (3)
  1. POTASSIUM CHLORIDE [Suspect]
     Indication: MINERAL SUPPLEMENTATION
     Dates: start: 20011101
  2. PRINIVIL [Suspect]
     Indication: HYPERTENSION
     Route: 048
     Dates: start: 20011101
  3. SPIRONOLACTONE [Suspect]
     Indication: HYPERTENSION
     Dates: start: 20011101

REACTIONS (1)
  - HYPERKALAEMIA [None]
